FAERS Safety Report 18014052 (Version 5)
Quarter: 2020Q4

REPORT INFORMATION
  Report Type: Spontaneous
  Country: US (occurrence: US)
  Receive Date: 20200713
  Receipt Date: 20201028
  Transmission Date: 20210113
  Serious: Yes (Hospitalization, Other)
  Sender: FDA-Public Use
  Company Number: US-DECIPHERA PHARMACEUTICALS LLC-2020-US-000025

PATIENT
  Sex: Male

DRUGS (2)
  1. QINLOCK [Suspect]
     Active Substance: RIPRETINIB
     Dosage: 150 MILLIGRAM, QD (IN THE MORNING)
     Route: 048
     Dates: start: 20200719
  2. QINLOCK [Suspect]
     Active Substance: RIPRETINIB
     Indication: CARCINOID TUMOUR OF THE STOMACH
     Dosage: 150 MILLIGRAM, QD
     Route: 048
     Dates: start: 20200618, end: 20200629

REACTIONS (11)
  - Fatigue [Unknown]
  - Sepsis [Recovered/Resolved]
  - Colostomy [Recovered/Resolved]
  - Burning sensation [Not Recovered/Not Resolved]
  - Hypoaesthesia [Unknown]
  - Skin fissures [Unknown]
  - Gait disturbance [Unknown]
  - Gastrointestinal stoma complication [Recovered/Resolved]
  - Neoplasm progression [Unknown]
  - Drug ineffective [Unknown]
  - Product use in unapproved indication [Unknown]
